FAERS Safety Report 5646155-2 (Version None)
Quarter: 2008Q1

REPORT INFORMATION
  Report Type: 
  Country: None (occurrence: None)
  Receive Date: 20080227
  Receipt Date: 20080212
  Transmission Date: 20080703
  Serious: Yes (Hospitalization)
  Sender: FDA-Public Use
  Company Number: B0509153A

PATIENT
  Age: 38 Year
  Sex: Male

DRUGS (6)
  1. LAMIVUDINE [Suspect]
     Indication: HIV INFECTION
  2. STAVUDINE [Suspect]
     Indication: HIV INFECTION
  3. EFAVIRENZ [Suspect]
     Indication: HIV INFECTION
  4. FLUCONAZOLE [Concomitant]
  5. ANTI-TB MEDICATION [Concomitant]
  6. CO-TRIMOXAZOLE [Concomitant]

REACTIONS (3)
  - HERPES ZOSTER [None]
  - IMMUNE RECONSTITUTION SYNDROME [None]
  - WEIGHT DECREASED [None]
